FAERS Safety Report 10061148 (Version 1)
Quarter: 2014Q2

REPORT INFORMATION
  Report Type: Spontaneous
  Country: FR (occurrence: FR)
  Receive Date: 20140406
  Receipt Date: 20140406
  Transmission Date: 20141212
  Serious: Yes (Hospitalization)
  Sender: FDA-Public Use
  Company Number: FR-BRISTOL-MYERS SQUIBB COMPANY-20575601

PATIENT
  Age: 78 Year
  Sex: Male

DRUGS (5)
  1. COUMADINE [Suspect]
     Indication: AORTIC VALVE REPLACEMENT
     Dosage: 1993-16JAN14=5MG,17JAN14-01FEB14= 4 MG
     Route: 048
     Dates: start: 1993
  2. NEBIVOLOL [Concomitant]
  3. ATACAND [Concomitant]
     Dosage: 1 DF IN MORNING
  4. TAHOR [Concomitant]
  5. INEXIUM [Concomitant]
     Route: 042

REACTIONS (3)
  - Haematemesis [Recovered/Resolved]
  - International normalised ratio increased [Recovered/Resolved]
  - Condition aggravated [Recovered/Resolved]
